FAERS Safety Report 13681805 (Version 1)
Quarter: 2017Q2

REPORT INFORMATION
  Report Type: Spontaneous
  Country: US (occurrence: US)
  Receive Date: 20170622
  Receipt Date: 20170622
  Transmission Date: 20170830
  Serious: No
  Sender: FDA-Public Use
  Company Number: None

PATIENT
  Age: 57 Year
  Sex: Female
  Weight: 84.6 kg

DRUGS (12)
  1. VITAMIN D3 [Concomitant]
     Active Substance: CHOLECALCIFEROL
  2. OXYCODONE [Concomitant]
     Active Substance: OXYCODONE
  3. ZOLOFT [Concomitant]
     Active Substance: SERTRALINE HYDROCHLORIDE
  4. VITAMIN B COMPLEX [Concomitant]
     Active Substance: CYANOCOBALAMIN\DEXPANTHENOL\NIACINAMIDE\PYRIDOXINE HYDROCHLORIDE\RIBOFLAVIN 5^-PHOSPHATE SODIUM\THIAMINE HYDROCHLORIDE\VITAMIN B COMPLEX
  5. BUPRENORPHINE TRANSDERMAL SYSTEM [Suspect]
     Active Substance: BUPRENORPHINE
     Indication: PAIN
     Dosage: 1 PATCH 24/7 CHANGE WEEKLY; TRANSDERMAL?
     Route: 062
     Dates: start: 20170622, end: 20170622
  6. SIMVASTATIN. [Concomitant]
     Active Substance: SIMVASTATIN
  7. NIACIN. [Concomitant]
     Active Substance: NIACIN
  8. BUTRANS [Concomitant]
     Active Substance: BUPRENORPHINE
  9. XANAX [Concomitant]
     Active Substance: ALPRAZOLAM
  10. WELLBUTRIN [Concomitant]
     Active Substance: BUPROPION HYDROCHLORIDE
  11. OMEPRAZOLE. [Concomitant]
     Active Substance: OMEPRAZOLE
  12. THIAMIN [Concomitant]
     Active Substance: THIAMINE

REACTIONS (6)
  - Product substitution issue [None]
  - Paraesthesia oral [None]
  - Hypoaesthesia oral [None]
  - Thinking abnormal [None]
  - Impaired driving ability [None]
  - Fear [None]

NARRATIVE: CASE EVENT DATE: 20170622
